FAERS Safety Report 10020832 (Version 1)
Quarter: 2014Q1

REPORT INFORMATION
  Report Type: Spontaneous
  Country: US (occurrence: None)
  Receive Date: 20140313
  Receipt Date: 20140313
  Transmission Date: 20141002
  Serious: Yes (Hospitalization)
  Sender: FDA-Public Use
  Company Number: SP07564

PATIENT
  Age: 85 Year
  Sex: Female
  Weight: 48.08 kg

DRUGS (1)
  1. MOVIPREP (SOLUTION) [Suspect]
     Indication: BOWEL PREPARATION
     Route: 048
     Dates: start: 201402, end: 201402

REACTIONS (7)
  - Oral discomfort [None]
  - Glossodynia [None]
  - Glossitis [None]
  - Stomatitis [None]
  - Abdominal pain [None]
  - Pyrexia [None]
  - Pancreatitis [None]
